FAERS Safety Report 4939056-6 (Version None)
Quarter: 2006Q1

REPORT INFORMATION
  Report Type: 
  Country: None (occurrence: None)
  Receive Date: 20060306
  Receipt Date: 20060224
  Transmission Date: 20060701
  Serious: Yes (Other)
  Sender: FDA-Public Use
  Company Number: 2006BH004026

PATIENT
  Age: 27 Year
  Sex: Female

DRUGS (2)
  1. DURAMORPH PF [Suspect]
     Indication: PAIN
     Dosage: 250 UG; ONCE; INTH
     Route: 037
     Dates: start: 20060223, end: 20060223
  2. INHALER [Concomitant]

REACTIONS (7)
  - CAESAREAN SECTION [None]
  - DRUG EXPOSURE DURING PREGNANCY [None]
  - GENERALISED ERYTHEMA [None]
  - OEDEMA PERIPHERAL [None]
  - PRURITUS [None]
  - SWELLING FACE [None]
  - SWOLLEN TONGUE [None]
